FAERS Safety Report 8885253 (Version 1)
Quarter: 2012Q4

REPORT INFORMATION
  Report Type: 
  Country: US (occurrence: US)
  Receive Date: 20121101
  Receipt Date: 20121101
  Transmission Date: 20130627
  Serious: No
  Sender: FDA-Public Use
  Company Number: US-ASTRAZENECA-2012SE80426

PATIENT
  Age: 62 Year
  Sex: Female

DRUGS (2)
  1. NEXIUM [Suspect]
     Route: 048
  2. TOPROL [Suspect]
     Route: 048

REACTIONS (4)
  - Hypersensitivity [Unknown]
  - Nasopharyngitis [Unknown]
  - Cough [Unknown]
  - Sinus disorder [Unknown]
